FAERS Safety Report 5138381-6 (Version None)
Quarter: 2006Q4

REPORT INFORMATION
  Report Type: 
  Country: None (occurrence: None)
  Receive Date: 20061030
  Receipt Date: 20060210
  Transmission Date: 20070319
  Serious: No
  Sender: FDA-Public Use
  Company Number: US-GLAXOSMITHKLINE-A0593888A

PATIENT
  Age: 71 Year
  Sex: Female

DRUGS (1)
  1. ADVAIR HFA [Suspect]
     Indication: DRUG USE FOR UNKNOWN INDICATION
     Route: 055
     Dates: start: 20050101, end: 20060203

REACTIONS (3)
  - CHEST DISCOMFORT [None]
  - EXTRASYSTOLES [None]
  - HEART RATE IRREGULAR [None]
